FAERS Safety Report 9690469 (Version 2)
Quarter: 2013Q4

REPORT INFORMATION
  Report Type: Spontaneous
  Country: US (occurrence: US)
  Receive Date: 20131115
  Receipt Date: 20131205
  Transmission Date: 20140711
  Serious: Yes (Hospitalization)
  Sender: FDA-Public Use
  Company Number: US-ROCHE-1301270

PATIENT
  Sex: Male

DRUGS (4)
  1. PEGASYS [Suspect]
     Indication: CHRONIC HEPATITIS C
     Dosage: 180 UG / 0.5 ML
     Route: 065
  2. RIBAPAK [Suspect]
     Indication: CHRONIC HEPATITIS C
     Dosage: 400/400 MG
     Route: 065
  3. INCIVEK [Suspect]
     Indication: CHRONIC HEPATITIS C
     Route: 065
  4. PROMACTA [Suspect]
     Indication: CHRONIC HEPATITIS C
     Route: 048

REACTIONS (1)
  - Liver injury [Unknown]
